FAERS Safety Report 9156331 (Version 1)
Quarter: 2013Q1

REPORT INFORMATION
  Report Type: Report from Study
  Country: US (occurrence: US)
  Receive Date: 20130312
  Receipt Date: 20130312
  Transmission Date: 20140127
  Serious: No
  Sender: FDA-Public Use
  Company Number: US-009507513-1303USA003389

PATIENT
  Sex: Female

DRUGS (4)
  1. VICTRELIS [Suspect]
     Indication: HEPATITIS C
     Dosage: UNK
     Route: 048
     Dates: start: 20111007
  2. REBETOL [Suspect]
     Indication: HEPATITIS C
     Dosage: UNK
     Route: 048
     Dates: start: 20110908
  3. PEGINTERFERON ALFA-2A [Suspect]
     Indication: HEPATITIS C
     Dosage: UNK
     Dates: start: 20110908
  4. LISINOPRIL [Concomitant]

REACTIONS (9)
  - Blood glucose increased [Unknown]
  - Nausea [Unknown]
  - Dysgeusia [Unknown]
  - Pyrexia [Unknown]
  - Chills [Unknown]
  - Fatigue [Unknown]
  - Asthenia [Unknown]
  - White blood cell count decreased [Unknown]
  - Blood pressure decreased [Unknown]
